FAERS Safety Report 6135319-X (Version None)
Quarter: 2009Q1

REPORT INFORMATION
  Report Type: 
  Country: None (occurrence: None)
  Receive Date: 20090327
  Receipt Date: 20081223
  Transmission Date: 20090719
  Serious: Yes (Life-Threatening, Hospitalization)
  Sender: FDA-Public Use
  Company Number: US-BRISTOL-MYERS SQUIBB COMPANY-14437396

PATIENT
  Age: 56 Year
  Sex: Female

DRUGS (6)
  1. SPRYCEL [Suspect]
     Indication: CHRONIC MYELOID LEUKAEMIA
     Dosage: STOPPED FOR THREE WEEKS AND THEN RESTARTED
     Route: 048
     Dates: start: 20070809
  2. SYNTHROID [Concomitant]
  3. ESTRATEST [Concomitant]
  4. KLONOPIN [Concomitant]
  5. EFFEXOR [Concomitant]
  6. WELLBUTRIN [Concomitant]
     Dosage: LONG TERM

REACTIONS (1)
  - HAEMATOMA [None]
